FAERS Safety Report 10270246 (Version 1)
Quarter: 2014Q3

REPORT INFORMATION
  Report Type: Spontaneous
  Country: MA (occurrence: MA)
  Receive Date: 20140701
  Receipt Date: 20140701
  Transmission Date: 20150326
  Serious: Yes (Other)
  Sender: FDA-Public Use
  Company Number: MA-MYLANLABS-2014S1014961

PATIENT
  Age: 41 Year
  Sex: Female

DRUGS (3)
  1. CALCIUM [Interacting]
     Active Substance: CALCIUM
     Dosage: 2G/DAY
     Route: 065
  2. VITAMIN D [Concomitant]
     Active Substance: CHOLECALCIFEROL
     Dosage: ALFA CALCIDIOL       2MICROG/DAY
     Route: 065
  3. LEVOTHYROXINE SODIUM. [Suspect]
     Active Substance: LEVOTHYROXINE SODIUM
     Dosage: 200MICROG/DAY
     Route: 065

REACTIONS (3)
  - Pituitary tumour [Recovered/Resolved]
  - Drug interaction [Recovered/Resolved]
  - Hypothyroidism [Recovered/Resolved]
